FAERS Safety Report 24627080 (Version 1)
Quarter: 2024Q4

REPORT INFORMATION
  Report Type: Spontaneous
  Country: CN (occurrence: CN)
  Receive Date: 20241115
  Receipt Date: 20241115
  Transmission Date: 20250114
  Serious: Yes (Hospitalization)
  Sender: ROCHE
  Company Number: CN-ROCHE-10000133309

PATIENT
  Age: 27 Year
  Sex: Female

DRUGS (3)
  1. RITUXIMAB [Suspect]
     Active Substance: RITUXIMAB
     Indication: Neuromyelitis optica spectrum disorder
     Route: 065
  2. MYCOPHENOLATE MOFETIL [Suspect]
     Active Substance: MYCOPHENOLATE MOFETIL
     Indication: Neuromyelitis optica spectrum disorder
     Route: 065
  3. SATRALIZUMAB [Concomitant]
     Active Substance: SATRALIZUMAB
     Indication: Neuromyelitis optica spectrum disorder

REACTIONS (3)
  - Disease recurrence [Unknown]
  - Osteonecrosis [Unknown]
  - Off label use [Unknown]
